FAERS Safety Report 5062088-7 (Version None)
Quarter: 2006Q3

REPORT INFORMATION
  Report Type: 
  Country: None (occurrence: None)
  Receive Date: 20060726
  Receipt Date: 20060525
  Transmission Date: 20061208
  Serious: Yes (Other)
  Sender: FDA-Public Use
  Company Number: US-ROCHE-449761

PATIENT
  Age: 26 Year
  Sex: Female

DRUGS (2)
  1. ACCUTANE [Suspect]
     Indication: ACNE
     Dosage: INDICATION REPORTED AS CYSTIC ACNE.
     Route: 048
     Dates: start: 19980318, end: 19980719
  2. ACCUTANE [Suspect]
     Dosage: INDICATION REPORTED AS NODULAR ACNE.
     Route: 048
     Dates: start: 19980212, end: 19980317

REACTIONS (3)
  - GESTATIONAL DIABETES [None]
  - NO ADVERSE EFFECT [None]
  - PREGNANCY [None]
